FAERS Safety Report 5910474-2 (Version None)
Quarter: 2008Q4

REPORT INFORMATION
  Report Type: 
  Country: None (occurrence: None)
  Receive Date: 20081006
  Receipt Date: 20081006
  Transmission Date: 20090506
  Serious: Yes (Other)
  Sender: FDA-Public Use
  Company Number: None

PATIENT
  Age: 34 Year
  Sex: Female
  Weight: 43.0917 kg

DRUGS (2)
  1. DERMATOP [Suspect]
     Indication: CUTANEOUS LUPUS ERYTHEMATOSUS
     Dosage: 1X  ONE TIME
     Dates: start: 19970317, end: 19970317
  2. DERMATOP [Suspect]
     Indication: SYSTEMIC LUPUS ERYTHEMATOSUS
     Dosage: 1X  ONE TIME
     Dates: start: 19970317, end: 19970317

REACTIONS (6)
  - ATROPHY [None]
  - DRUG HYPERSENSITIVITY [None]
  - FATIGUE [None]
  - INFECTION [None]
  - RENAL PAIN [None]
  - SKIN DISORDER [None]
